FAERS Safety Report 6619344-8 (Version None)
Quarter: 2010Q1

REPORT INFORMATION
  Report Type: 
  Country: None (occurrence: None)
  Receive Date: 20100308
  Receipt Date: 20091002
  Transmission Date: 20100710
  Serious: No
  Sender: FDA-Public Use
  Company Number: US-TYCO HEALTHCARE/MALLINCKRODT-T200901845

PATIENT
  Age: 60 Year
  Sex: Male

DRUGS (1)
  1. RESTORIL [Suspect]

REACTIONS (2)
  - DRUG EFFECT DECREASED [None]
  - DRUG TOLERANCE [None]
